FAERS Safety Report 10410674 (Version 2)
Quarter: 2014Q4

REPORT INFORMATION
  Report Type: Spontaneous
  Country: US (occurrence: US)
  Receive Date: 20140826
  Receipt Date: 20141022
  Transmission Date: 20150528
  Serious: No
  Sender: FDA-Public Use
  Company Number: US-ELI_LILLY_AND_COMPANY-US201407010645

PATIENT
  Sex: Female

DRUGS (3)
  1. HUMALOG [Suspect]
     Active Substance: INSULIN LISPRO
     Dosage: 8 U, PRN
     Route: 065
  2. HUMALOG [Suspect]
     Active Substance: INSULIN LISPRO
     Dosage: 8 U, PRN
     Route: 065
  3. HUMALOG [Suspect]
     Active Substance: INSULIN LISPRO
     Indication: TYPE 1 DIABETES MELLITUS
     Dosage: 8 U, PRN
     Route: 065

REACTIONS (9)
  - Blood glucose increased [Not Recovered/Not Resolved]
  - Dry mouth [Unknown]
  - Rash generalised [Unknown]
  - Drug dose omission [Unknown]
  - Injection site bruising [Unknown]
  - Incorrect product storage [Unknown]
  - Underdose [Unknown]
  - Injection site mass [Unknown]
  - Injection site pruritus [Unknown]
